FAERS Safety Report 5918940-0 (Version None)
Quarter: 2008Q4

REPORT INFORMATION
  Report Type: 
  Country: None (occurrence: None)
  Receive Date: 20081015
  Receipt Date: 20081010
  Transmission Date: 20090506
  Serious: Yes (Death, Other)
  Sender: FDA-Public Use
  Company Number: AR-NOVOPROD-279873

PATIENT
  Age: 28 Year
  Sex: Male
  Weight: 100 kg

DRUGS (5)
  1. NOVOSEVEN [Suspect]
     Indication: COAGULOPATHY
     Dosage: 4.8 MG, SINGLE
     Route: 042
     Dates: start: 20080919
  2. MIDAZOLAM HCL [Concomitant]
     Indication: ANAESTHESIA
  3. REMIFENTANIL [Concomitant]
     Indication: ANAESTHESIA
  4. CLINDAMICIN [Concomitant]
  5. GENTAMICIN [Concomitant]

REACTIONS (3)
  - CEREBRAL INFARCTION [None]
  - DISSEMINATED INTRAVASCULAR COAGULATION [None]
  - VENOUS THROMBOSIS [None]
